FAERS Safety Report 18599112 (Version 2)
Quarter: 2021Q1

REPORT INFORMATION
  Report Type: Spontaneous
  Country: JP (occurrence: JP)
  Receive Date: 20201210
  Receipt Date: 20210104
  Transmission Date: 20210419
  Serious: Yes (Other)
  Sender: FDA-Public Use
  Company Number: NVSJ2020JP013067

PATIENT
  Age: 84 Year
  Sex: Female

DRUGS (5)
  1. SYMMETREL [Suspect]
     Active Substance: AMANTADINE HYDROCHLORIDE
     Dosage: 100 MG
     Route: 048
     Dates: start: 20201128
  2. SUNRYTHM [Concomitant]
     Active Substance: PILSICAINIDE HYDROCHLORIDE
     Indication: PRODUCT USED FOR UNKNOWN INDICATION
     Route: 065
  3. SYMMETREL [Suspect]
     Active Substance: AMANTADINE HYDROCHLORIDE
     Dosage: 50 MG
     Route: 048
     Dates: start: 20201204
  4. MERCAZOLE [Concomitant]
     Active Substance: CARBIMAZOLE
     Indication: PRODUCT USED FOR UNKNOWN INDICATION
     Route: 065
  5. SYMMETREL [Suspect]
     Active Substance: AMANTADINE HYDROCHLORIDE
     Indication: PRODUCT USED FOR UNKNOWN INDICATION
     Dosage: 100 MG, BID
     Route: 048

REACTIONS (3)
  - Tremor [Recovered/Resolved]
  - Delirium [Recovered/Resolved]
  - Renal impairment [Unknown]
